FAERS Safety Report 9289501 (Version 2)
Quarter: 2013Q2

REPORT INFORMATION
  Report Type: Spontaneous
  Country: US (occurrence: US)
  Receive Date: 20130515
  Receipt Date: 20130517
  Transmission Date: 20140414
  Serious: No
  Sender: FDA-Public Use
  Company Number: US-009507513-1305USA004992

PATIENT
  Age: 60 Year
  Sex: Male

DRUGS (6)
  1. SAPHRIS [Suspect]
     Indication: PSYCHOTIC DISORDER
     Dosage: 10 MG, TWICE DAILY
     Route: 060
     Dates: start: 20130501
  2. SAPHRIS [Suspect]
     Indication: BIPOLAR DISORDER
     Dosage: 20 MG, BID
     Route: 060
     Dates: start: 201305
  3. THIOTHIXENE [Concomitant]
     Dosage: 10 MG, THREE TIMES A DAY
  4. PAXIL [Concomitant]
     Dosage: 20 MG, THREE TIMES A DAY
  5. ABILIFY [Concomitant]
     Dosage: 20 MG, ONCE DAILY
  6. TRILEPTAL [Concomitant]
     Dosage: 300 MG, THREE TIMES A DAY

REACTIONS (3)
  - Drug ineffective [Unknown]
  - Persecutory delusion [Recovering/Resolving]
  - Hallucination, auditory [Recovering/Resolving]
